FAERS Safety Report 7946670-2 (Version None)
Quarter: 2011Q4

REPORT INFORMATION
  Report Type: 
  Country: None (occurrence: None)
  Receive Date: 20111125
  Receipt Date: 20111114
  Transmission Date: 20120403
  Serious: Yes (Hospitalization)
  Sender: FDA-Public Use
  Company Number: 2011MA016670

PATIENT
  Age: 43 Year
  Sex: Female

DRUGS (3)
  1. CANDESARTAN CILEXETIL [Concomitant]
  2. CITALOPRAM HYDROBROMIDE [Suspect]
     Indication: DEPRESSION
     Dosage: 20 MG
  3. ANTIOTENSIN RECEPTOR BLOCKERS [Concomitant]

REACTIONS (5)
  - AGITATION [None]
  - ACUTE PSYCHOSIS [None]
  - MALAISE [None]
  - NAUSEA [None]
  - TOXICITY TO VARIOUS AGENTS [None]
